FAERS Safety Report 11339772 (Version 1)
Quarter: 2015Q3

REPORT INFORMATION
  Report Type: Spontaneous
  Country: SG (occurrence: None)
  Receive Date: 20150803
  Receipt Date: 20150803
  Transmission Date: 20151125
  Serious: Yes (Hospitalization)
  Sender: FDA-Public Use
  Company Number: IPC201507-000470

PATIENT
  Age: 67 Year
  Sex: Male

DRUGS (1)
  1. ALLOPURINOL (ALLOPURINOL) (ALLOPURINOL) [Suspect]
     Active Substance: ALLOPURINOL

REACTIONS (3)
  - Stevens-Johnson syndrome [None]
  - Toxic epidermal necrolysis [None]
  - Pneumonia [None]
